FAERS Safety Report 6814292-2 (Version None)
Quarter: 2010Q3

REPORT INFORMATION
  Report Type: 
  Country: None (occurrence: None)
  Receive Date: 20100702
  Receipt Date: 20100622
  Transmission Date: 20110219
  Serious: Yes (Other)
  Sender: FDA-Public Use
  Company Number: US-JNJFOC-20100607313

PATIENT
  Sex: Male

DRUGS (3)
  1. REMICADE [Suspect]
     Indication: COLITIS ULCERATIVE
     Route: 042
  2. ASACOL [Concomitant]
     Indication: COLITIS ULCERATIVE
     Dosage: ON-GOING
  3. STEROIDS NOS [Concomitant]
     Indication: COLITIS ULCERATIVE
     Dosage: ON-GOING

REACTIONS (1)
  - LUNG NEOPLASM MALIGNANT [None]
